FAERS Safety Report 8426150-0 (Version None)
Quarter: 2012Q2

REPORT INFORMATION
  Report Type: 
  Country: None (occurrence: None)
  Receive Date: 20120611
  Receipt Date: 20120530
  Transmission Date: 20120825
  Serious: Yes (Other)
  Sender: FDA-Public Use
  Company Number: TR-AMGEN-TURSP2012012003

PATIENT
  Age: 35 Year
  Sex: Female

DRUGS (3)
  1. MUCOLATOR [Concomitant]
     Dosage: 600 MG, QD
     Dates: start: 20120523
  2. CLARITHROMYCIN [Concomitant]
     Dosage: 500 MG, QD
     Dates: start: 20120523
  3. ENBREL [Suspect]
     Indication: RHEUMATOID ARTHRITIS
     Dosage: 50 MG, WEEKLY
     Route: 058
     Dates: start: 20111125

REACTIONS (8)
  - OEDEMA PERIPHERAL [None]
  - MENSTRUATION DELAYED [None]
  - RENAL CYST [None]
  - BRONCHITIS [None]
  - MUSCULOSKELETAL STIFFNESS [None]
  - PAIN [None]
  - BLOOD PRESSURE INCREASED [None]
  - DIZZINESS [None]
